FAERS Safety Report 6164883-X (Version None)
Quarter: 2009Q2

REPORT INFORMATION
  Report Type: 
  Country: None (occurrence: None)
  Receive Date: 20090423
  Receipt Date: 20090406
  Transmission Date: 20091009
  Serious: Yes (Other)
  Sender: FDA-Public Use
  Company Number: PHHY2009AR13111

PATIENT
  Sex: Male

DRUGS (1)
  1. EXELON [Suspect]
     Dosage: EXELON PATCH 5, ONE PATCH DAILY
     Route: 062
     Dates: start: 20081219

REACTIONS (2)
  - ANGIOEDEMA [None]
  - HYPERSENSITIVITY [None]
